FAERS Safety Report 9621121 (Version 1)
Quarter: 2013Q4

REPORT INFORMATION
  Report Type: Spontaneous
  Country: US (occurrence: US)
  Receive Date: 20131015
  Receipt Date: 20131015
  Transmission Date: 20140711
  Serious: No
  Sender: FDA-Public Use
  Company Number: US-TEVA-438112USA

PATIENT
  Age: 51 Year
  Sex: Female
  Weight: 65.83 kg

DRUGS (3)
  1. COPAXONE [Suspect]
     Indication: RELAPSING-REMITTING MULTIPLE SCLEROSIS
     Dates: start: 201308
  2. LORAZEPAM [Concomitant]
     Indication: INSOMNIA
  3. VALIUM [Concomitant]
     Indication: MUSCLE SPASMS

REACTIONS (1)
  - Enterobiasis [Not Recovered/Not Resolved]
